FAERS Safety Report 6044909-4 (Version None)
Quarter: 2009Q1

REPORT INFORMATION
  Report Type: 
  Country: None (occurrence: None)
  Receive Date: 20090116
  Receipt Date: 20090116
  Transmission Date: 20090719
  Serious: No
  Sender: FDA-Public Use
  Company Number: None

PATIENT
  Age: 34 Year
  Sex: Female
  Weight: 86.1834 kg

DRUGS (1)
  1. D-AMPHETAMINE SALTS 20 MG UNKNOWN? [Suspect]
     Indication: ATTENTION DEFICIT/HYPERACTIVITY DISORDER
     Dosage: 20 MG MORNING PO
     Route: 048
     Dates: start: 20080727, end: 20081231

REACTIONS (4)
  - ABDOMINAL DISCOMFORT [None]
  - APHTHOUS STOMATITIS [None]
  - ORAL MUCOSAL EXFOLIATION [None]
  - STOMATITIS [None]
